FAERS Safety Report 15160819 (Version 2)
Quarter: 2018Q3

REPORT INFORMATION
  Report Type: Spontaneous
  Country: JP (occurrence: JP)
  Receive Date: 20180718
  Receipt Date: 20180731
  Transmission Date: 20181010
  Serious: No
  Sender: FDA-Public Use
  Company Number: JP-009507513-1803JPN000540J

PATIENT
  Sex: Female
  Weight: 50 kg

DRUGS (12)
  1. ESLAX INTRAVENOUS 25MG/2.5ML [Suspect]
     Active Substance: ROCURONIUM BROMIDE
     Indication: MUSCLE RELAXANT THERAPY
  2. FLUMARIN [Concomitant]
     Active Substance: FLOMOXEF SODIUM
     Indication: INFECTION PROPHYLAXIS
     Dosage: 1 G, QD
     Route: 041
     Dates: start: 20171220, end: 20171220
  3. ESLAX INTRAVENOUS 25MG/2.5ML [Suspect]
     Active Substance: ROCURONIUM BROMIDE
     Indication: NEUROMUSCULAR BLOCKING THERAPY
     Dosage: UNK
     Route: 041
     Dates: start: 20171220, end: 20171220
  4. FENTANYL. [Concomitant]
     Active Substance: FENTANYL
     Indication: POSTOPERATIVE ANALGESIA
     Dosage: 100 MG, QD
     Route: 041
     Dates: start: 20171220, end: 20171220
  5. BRIDION [Suspect]
     Active Substance: SUGAMMADEX
     Indication: MUSCLE RELAXANT THERAPY
     Dosage: 200 MG, QD
     Route: 041
     Dates: start: 20171220, end: 20171220
  6. PROPOFOL. [Concomitant]
     Active Substance: PROPOFOL
     Indication: INDUCTION OF ANAESTHESIA
     Dosage: 70 G, QD
     Route: 041
     Dates: start: 20171220, end: 20171220
  7. REMIFENTANIL HYDROCHLORIDE. [Concomitant]
     Active Substance: REMIFENTANIL HYDROCHLORIDE
     Indication: INDUCTION AND MAINTENANCE OF ANAESTHESIA
     Dosage: 1.4 G, UNK
     Route: 041
     Dates: start: 20171220, end: 20171220
  8. REMIFENTANIL HYDROCHLORIDE. [Concomitant]
     Active Substance: REMIFENTANIL HYDROCHLORIDE
     Indication: ANALGESIC THERAPY
  9. DESFLURANE. [Concomitant]
     Active Substance: DESFLURANE
     Indication: MAINTENANCE OF ANAESTHESIA
     Dosage: UNK
     Route: 055
  10. EPHEDRIN [Concomitant]
     Active Substance: EPHEDRINE HYDROCHLORIDE
     Indication: BLOOD PRESSURE MANAGEMENT
     Dosage: 8 MG, QD
     Route: 041
     Dates: start: 20171220, end: 20171220
  11. OXYGEN. [Concomitant]
     Active Substance: OXYGEN
     Dosage: UNK
     Route: 055
  12. ACELIO [Concomitant]
     Active Substance: ACETAMINOPHEN
     Indication: ANALGESIC THERAPY
     Dosage: 100 G, QD
     Route: 041
     Dates: start: 20171220, end: 20171220

REACTIONS (1)
  - Maternal exposure during pregnancy [Unknown]
